FAERS Safety Report 20853722 (Version 1)
Quarter: 2022Q2

REPORT INFORMATION
  Report Type: Spontaneous
  Country: JP (occurrence: JP)
  Receive Date: 20220520
  Receipt Date: 20220520
  Transmission Date: 20220720
  Serious: Yes (Other)
  Sender: FDA-Public Use
  Company Number: JP-ASTELLAS-2022JP006999

PATIENT
  Age: 81 Year
  Sex: Male

DRUGS (2)
  1. MIRABEGRON [Interacting]
     Active Substance: MIRABEGRON
     Indication: Urinary incontinence
     Route: 065
     Dates: end: 20220516
  2. DONEPEZIL HYDROCHLORIDE [Interacting]
     Active Substance: DONEPEZIL HYDROCHLORIDE
     Indication: Product used for unknown indication
     Dosage: UNK UNK, UNKNOWN FREQ.
     Route: 048
     Dates: start: 202011

REACTIONS (5)
  - Syncope [Unknown]
  - Hyperhidrosis [Unknown]
  - Peripheral coldness [Unknown]
  - Eczema [Unknown]
  - Labelled drug-drug interaction issue [Unknown]

NARRATIVE: CASE EVENT DATE: 20220516
